FAERS Safety Report 7328873-3 (Version None)
Quarter: 2011Q1

REPORT INFORMATION
  Report Type: 
  Country: None (occurrence: None)
  Receive Date: 20110303
  Receipt Date: 20110221
  Transmission Date: 20110831
  Serious: Yes (Other)
  Sender: FDA-Public Use
  Company Number: US-JNJFOC-20110208103

PATIENT
  Age: 37 Year
  Sex: Female
  Weight: 52.16 kg

DRUGS (1)
  1. LISTERINE [Suspect]
     Indication: POISONING
     Dosage: SPORADICALLY INGESTED PRODUCT
     Route: 048

REACTIONS (3)
  - LOSS OF CONSCIOUSNESS [None]
  - INTENTIONAL DRUG MISUSE [None]
  - INCORRECT ROUTE OF DRUG ADMINISTRATION [None]
